FAERS Safety Report 16557523 (Version 1)
Quarter: 2019Q3

REPORT INFORMATION
  Report Type: Report from Study
  Country: JP (occurrence: JP)
  Receive Date: 20190711
  Receipt Date: 20190711
  Transmission Date: 20191004
  Serious: Yes (Hospitalization)
  Sender: FDA-Public Use
  Company Number: JP-CELLTRION INC.-2019JP020717

PATIENT

DRUGS (20)
  1. 5-FU [FLUOROURACIL] [Suspect]
     Active Substance: FLUOROURACIL
     Dosage: BOLUS 600MG, DIV 3600 MG
     Route: 042
     Dates: start: 20190122, end: 20190124
  2. DEXAMETHASONE. [Suspect]
     Active Substance: DEXAMETHASONE
     Indication: PROPHYLAXIS OF NAUSEA AND VOMITING
     Dosage: 6.6 MILLIGRAM, QD, DAY1
     Route: 065
     Dates: start: 20180927, end: 20181126
  3. TRASTUZUMAB BS FOR I.V. INFUSION [NK] [Suspect]
     Active Substance: TRASTUZUMAB
     Dosage: 310 MILLIGRAM, QD
     Route: 041
     Dates: start: 20190313, end: 20190313
  4. OXALIPLATIN. [Suspect]
     Active Substance: OXALIPLATIN
     Indication: HER-2 POSITIVE GASTRIC CANCER
     Dosage: 100 MILLIGRAM, QD
     Route: 065
     Dates: start: 20190108, end: 20190108
  5. OXALIPLATIN. [Suspect]
     Active Substance: OXALIPLATIN
     Dosage: 78 MILLIGRAM, QD
     Route: 065
     Dates: start: 20190313, end: 20190313
  6. 5-FU [FLUOROURACIL] [Suspect]
     Active Substance: FLUOROURACIL
     Indication: HER-2 POSITIVE GASTRIC CANCER
     Dosage: BOLUS 600MG, DIV 3600 MG
     Route: 042
     Dates: start: 20190108, end: 20190110
  7. 5-FU [FLUOROURACIL] [Suspect]
     Active Substance: FLUOROURACIL
     Dosage: BOLUS 500MG, DIV 3000 MG
     Route: 042
     Dates: start: 20190227, end: 20190301
  8. LEVOFOLINATE [Suspect]
     Active Substance: LEVOLEUCOVORIN CALCIUM
     Indication: HER-2 POSITIVE GASTRIC CANCER
     Dosage: UNK
     Route: 065
     Dates: start: 20180927
  9. GRANISETRON [Concomitant]
     Active Substance: GRANISETRON
     Indication: PROPHYLAXIS OF NAUSEA AND VOMITING
     Dosage: UNK
     Dates: start: 20181127
  10. OXALIPLATIN. [Suspect]
     Active Substance: OXALIPLATIN
     Dosage: 78 MILLIGRAM, QD
     Route: 065
     Dates: start: 20190227, end: 20190227
  11. DEXAMETHASONE. [Suspect]
     Active Substance: DEXAMETHASONE
     Dosage: 6.6 MILLIGRAM, QD, DAY2, 3
     Route: 065
     Dates: start: 20181127
  12. TRASTUZUMAB BS FOR I.V. INFUSION [NK] [Suspect]
     Active Substance: TRASTUZUMAB
     Dosage: 310 MILLIGRAM, QD
     Route: 041
     Dates: start: 20190403, end: 20190403
  13. DEXAMETHASONE. [Suspect]
     Active Substance: DEXAMETHASONE
     Dosage: 6.6 MILLIGRAM, QD, DAY1
     Route: 065
     Dates: start: 20181127
  14. TRASTUZUMAB BS FOR I.V. INFUSION [NK] [Suspect]
     Active Substance: TRASTUZUMAB
     Dosage: 310 MILLIGRAM, QD
     Route: 041
     Dates: start: 20190129, end: 20190129
  15. TRASTUZUMAB BS FOR I.V. INFUSION [NK] [Suspect]
     Active Substance: TRASTUZUMAB
     Indication: HER-2 POSITIVE GASTRIC CANCER
     Dosage: 310 MILLIGRAM, QD
     Route: 041
     Dates: start: 20190108, end: 20190108
  16. TRASTUZUMAB BS FOR I.V. INFUSION [NK] [Suspect]
     Active Substance: TRASTUZUMAB
     Dosage: 310 MILLIGRAM, QD
     Route: 041
     Dates: start: 20190219, end: 20190219
  17. OXALIPLATIN. [Suspect]
     Active Substance: OXALIPLATIN
     Dosage: 78 MILLIGRAM, QD
     Route: 065
     Dates: start: 20190213, end: 20190213
  18. 5-FU [FLUOROURACIL] [Suspect]
     Active Substance: FLUOROURACIL
     Dosage: BOLUS 500MG, DIV 3000 MG
     Route: 042
     Dates: start: 20190213, end: 20190215
  19. 5-FU [FLUOROURACIL] [Suspect]
     Active Substance: FLUOROURACIL
     Dosage: BOLUS 500MG, DIV 3000 MG
     Route: 042
     Dates: start: 20190313, end: 20190315
  20. OXALIPLATIN. [Suspect]
     Active Substance: OXALIPLATIN
     Dosage: 100 MILLIGRAM, QD
     Route: 065
     Dates: start: 20190122, end: 20190122

REACTIONS (11)
  - Neutrophil count decreased [Recovered/Resolved]
  - Infection [Unknown]
  - Pneumonia [Recovered/Resolved]
  - Blood lactate dehydrogenase increased [Not Recovered/Not Resolved]
  - Hyponatraemia [Not Recovered/Not Resolved]
  - Platelet count decreased [Not Recovered/Not Resolved]
  - Anaemia [Not Recovered/Not Resolved]
  - Neuropathy peripheral [Not Recovered/Not Resolved]
  - Decreased appetite [Recovered/Resolved]
  - Nausea [Recovered/Resolved]
  - Underdose [Unknown]

NARRATIVE: CASE EVENT DATE: 20190121
